FAERS Safety Report 4704583-3 (Version None)
Quarter: 2005Q2

REPORT INFORMATION
  Report Type: 
  Country: None (occurrence: None)
  Receive Date: 20050629
  Receipt Date: 20050616
  Transmission Date: 20051028
  Serious: Yes (Hospitalization, Disabling, Other)
  Sender: FDA-Public Use
  Company Number: 2005082544

PATIENT
  Age: 54 Year
  Sex: Male
  Weight: 75 kg

DRUGS (4)
  1. VIAGRA [Suspect]
     Indication: ERECTILE DYSFUNCTION
     Dosage: (50 MG, AS NECESSARY), ORAL
     Route: 048
     Dates: start: 20050401
  2. OLMETEC (OLMESARTAN) [Concomitant]
  3. NIFEDIPINE [Concomitant]
  4. STRESAM          (ETIFOXINE) [Concomitant]

REACTIONS (3)
  - CEREBRAL ARTERY THROMBOSIS [None]
  - FOOT OPERATION [None]
  - ISCHAEMIC STROKE [None]
